FAERS Safety Report 10946074 (Version 1)
Quarter: 2015Q1

REPORT INFORMATION
  Report Type: Report from Study
  Country: US (occurrence: US)
  Receive Date: 20150323
  Receipt Date: 20150323
  Transmission Date: 20150721
  Serious: Yes (Hospitalization)
  Sender: FDA-Public Use
  Company Number: US-GILEAD-2015-0143489

PATIENT
  Age: 60 Year
  Sex: Female

DRUGS (1)
  1. LEDIPASVIR/SOFOSBUVIR [Suspect]
     Active Substance: LEDIPASVIR\SOFOSBUVIR
     Indication: CHRONIC HEPATITIS C
     Dosage: 1 DF, UNK
     Route: 048
     Dates: start: 20150110

REACTIONS (8)
  - Confusional state [Unknown]
  - Gastric disorder [Unknown]
  - Hypertension [Unknown]
  - Chronic obstructive pulmonary disease [Unknown]
  - Headache [Unknown]
  - Sleep disorder [Unknown]
  - Dysgeusia [Unknown]
  - Euphoric mood [Unknown]
